FAERS Safety Report 5476156-9 (Version None)
Quarter: 2007Q4

REPORT INFORMATION
  Report Type: 
  Country: None (occurrence: None)
  Receive Date: 20071003
  Receipt Date: 20070924
  Transmission Date: 20080405
  Serious: Yes (Hospitalization, Other)
  Sender: FDA-Public Use
  Company Number: DE-JNJFOC-20070706060

PATIENT
  Sex: Male
  Weight: 74 kg

DRUGS (3)
  1. INVEGA [Suspect]
     Indication: DELUSIONAL DISORDER, PERSECUTORY TYPE
     Route: 048
  2. MAGNESIUM VERLA [Concomitant]
     Indication: DRUG WITHDRAWAL SYNDROME
     Route: 048
  3. AKINETON [Concomitant]
     Indication: EXTRAPYRAMIDAL DISORDER
     Route: 048

REACTIONS (3)
  - MUSCULOSKELETAL STIFFNESS [None]
  - OROPHARYNGEAL SPASM [None]
  - TONGUE SPASM [None]
